FAERS Safety Report 15937455 (Version 1)
Quarter: 2019Q1

REPORT INFORMATION
  Report Type: Other
  Country: GR (occurrence: GR)
  Receive Date: 20190208
  Receipt Date: 20190208
  Transmission Date: 20190417
  Serious: Yes (Hospitalization)
  Sender: FDA-Public Use
  Company Number: GR-PROVELL PHARMACEUTICALS-2062358

PATIENT
  Age: 34 Year
  Sex: Female

DRUGS (6)
  1. BETAMETHASONE. [Suspect]
     Active Substance: BETAMETHASONE
     Route: 030
  2. METRONIDAZOLE. [Suspect]
     Active Substance: METRONIDAZOLE
  3. CEFUROXIME. [Suspect]
     Active Substance: CEFUROXIME
  4. EUTHYROX [Suspect]
     Active Substance: LEVOTHYROXINE SODIUM
     Indication: HYPERTHYROIDISM
  5. BETADINE [Suspect]
     Active Substance: POVIDONE-IODINE
     Route: 067
  6. AMOXICILLIN. [Suspect]
     Active Substance: AMOXICILLIN

REACTIONS (5)
  - Live birth [Unknown]
  - Exposure during pregnancy [Unknown]
  - Delayed delivery [Unknown]
  - Twin pregnancy [Unknown]
  - Premature rupture of membranes [Unknown]
